FAERS Safety Report 15372610 (Version 1)
Quarter: 2018Q3

REPORT INFORMATION
  Report Type: Spontaneous
  Country: US (occurrence: US)
  Receive Date: 20180912
  Receipt Date: 20180912
  Transmission Date: 20181010
  Serious: No
  Sender: FDA-Public Use
  Company Number: US-BAUSCH-BL-2018-002663

PATIENT
  Age: 52 Year
  Sex: Male

DRUGS (1)
  1. PODOFILOX TOPICAL SOLUTION 0.5% [Suspect]
     Active Substance: PODOFILOX
     Indication: ANOGENITAL WARTS
     Route: 061
     Dates: start: 20180126, end: 20180129

REACTIONS (2)
  - Application site exfoliation [Not Recovered/Not Resolved]
  - Application site erythema [Not Recovered/Not Resolved]
